FAERS Safety Report 23687750 (Version 1)
Quarter: 2024Q1

REPORT INFORMATION
  Report Type: Spontaneous
  Country: EG (occurrence: EG)
  Receive Date: 20240329
  Receipt Date: 20240329
  Transmission Date: 20240410
  Serious: No
  Sender: FDA-Public Use
  Company Number: EG-SANDOZ-SDZ2023EG032758

PATIENT
  Sex: Male

DRUGS (1)
  1. OMNITROPE [Suspect]
     Active Substance: SOMATROPIN
     Indication: Growth hormone deficiency
     Dosage: 1.6 MG, QD
     Route: 058
     Dates: start: 20210330, end: 20230915

REACTIONS (5)
  - Product dose omission issue [Unknown]
  - Product dose omission issue [Unknown]
  - Medication error [Unknown]
  - Wrong technique in product usage process [Unknown]
  - Device mechanical issue [Unknown]

NARRATIVE: CASE EVENT DATE: 20220421
